FAERS Safety Report 13624475 (Version 1)
Quarter: 2017Q2

REPORT INFORMATION
  Report Type: Spontaneous
  Country: US (occurrence: US)
  Receive Date: 20170607
  Receipt Date: 20170607
  Transmission Date: 20170830
  Serious: No
  Sender: FDA-Public Use
  Company Number: US-PURDUE-USA-2016-0135565

PATIENT
  Sex: Male

DRUGS (3)
  1. BUTRANS [Suspect]
     Active Substance: BUPRENORPHINE
     Dosage: 20 UNK, UNK
     Route: 062
  2. BUTRANS [Suspect]
     Active Substance: BUPRENORPHINE
     Indication: PAIN
     Dosage: 5 MCG/HR, WEEKLY
     Route: 062
     Dates: start: 201606
  3. BUTRANS [Suspect]
     Active Substance: BUPRENORPHINE
     Dosage: 10 UNK, UNK
     Route: 062

REACTIONS (12)
  - Vertigo [Unknown]
  - Gait disturbance [Unknown]
  - Dyspnoea [Unknown]
  - Withdrawal syndrome [Unknown]
  - Drug ineffective [Unknown]
  - Dizziness [Unknown]
  - Joint swelling [Unknown]
  - Headache [Unknown]
  - Unevaluable event [Unknown]
  - Bone pain [Unknown]
  - Insomnia [Unknown]
  - Feeling abnormal [Unknown]
